FAERS Safety Report 9157989 (Version 1)
Quarter: 2013Q1

REPORT INFORMATION
  Report Type: Spontaneous
  Country: FR (occurrence: FR)
  Receive Date: 20130312
  Receipt Date: 20130312
  Transmission Date: 20140127
  Serious: Yes (Hospitalization)
  Sender: FDA-Public Use
  Company Number: FR-ROCHE-1200005

PATIENT
  Age: 72 Year
  Sex: Male

DRUGS (10)
  1. RIVOTRIL [Suspect]
     Indication: PRODUCT USED FOR UNKNOWN INDICATION
     Route: 048
     Dates: end: 20120407
  2. RIVOTRIL [Suspect]
     Dosage: 5 DROPS IN THE EVENING
     Route: 065
     Dates: start: 20120417
  3. STILNOX [Suspect]
     Indication: PRODUCT USED FOR UNKNOWN INDICATION
     Route: 048
     Dates: start: 20120328, end: 20120411
  4. DIAMICRON [Concomitant]
     Route: 048
  5. KARDEGIC [Concomitant]
     Route: 048
  6. PLAVIX [Concomitant]
     Route: 048
  7. SIMVASTATINE [Concomitant]
     Route: 048
  8. RAMIPRIL [Concomitant]
     Route: 048
  9. SEROPLEX [Concomitant]
     Route: 048
  10. ATARAX [Concomitant]
     Route: 048

REACTIONS (2)
  - Confusional state [Recovered/Resolved]
  - Delusion [Recovered/Resolved]
